FAERS Safety Report 11037674 (Version 2)
Quarter: 2015Q2

REPORT INFORMATION
  Report Type: Spontaneous
  Country: IT (occurrence: IT)
  Receive Date: 20150416
  Receipt Date: 20150427
  Transmission Date: 20150821
  Serious: Yes (Other)
  Sender: FDA-Public Use
  Company Number: IT-SUN PHARMACEUTICAL INDUSTRIES LTD-2015RR-95617

PATIENT
  Age: 52 Year
  Sex: Female

DRUGS (2)
  1. TRAMADOL [Interacting]
     Active Substance: TRAMADOL
     Indication: PRODUCT USED FOR UNKNOWN INDICATION
     Dosage: 1 DOSAGE UNIT, DAILY
     Route: 048
     Dates: start: 20140904, end: 20140908
  2. VENLAFAXINE [Suspect]
     Active Substance: VENLAFAXINE HYDROCHLORIDE
     Indication: PRODUCT USED FOR UNKNOWN INDICATION
     Dosage: 75 MG TOTAL
     Route: 048
     Dates: start: 20140908, end: 20140908

REACTIONS (5)
  - Paraesthesia [Unknown]
  - Drug interaction [Unknown]
  - Mydriasis [Unknown]
  - Agitation [Unknown]
  - Tachycardia [Unknown]

NARRATIVE: CASE EVENT DATE: 20140908
